FAERS Safety Report 5394176-X (Version None)
Quarter: 2007Q3

REPORT INFORMATION
  Report Type: 
  Country: None (occurrence: None)
  Receive Date: 20070723
  Receipt Date: 20070710
  Transmission Date: 20080115
  Serious: Yes (Disabling)
  Sender: FDA-Public Use
  Company Number: IE-ASTRAZENECA-2007GB01348

PATIENT
  Sex: Female

DRUGS (1)
  1. CRESTOR [Suspect]
     Indication: BLOOD CHOLESTEROL
     Route: 048
     Dates: start: 20061102, end: 20070620

REACTIONS (2)
  - MYALGIA [None]
  - PERNICIOUS ANAEMIA [None]
